FAERS Safety Report 9507694 (Version 2)
Quarter: 2013Q1

REPORT INFORMATION
  Report Type: Spontaneous
  Country: US (occurrence: None)
  Receive Date: 20130305
  Receipt Date: 20130305
  Transmission Date: 20140127
  Serious: Yes (Other)
  Sender: FDA-Public Use
  Company Number: 163-21880-12120329

PATIENT
  Sex: Male

DRUGS (1)
  1. REVLIMID (LENALIDOMIDE) (UNKNOWN) [Suspect]
     Indication: PLASMA CELL MYELOMA
     Dosage: 15 MG, 21 IN 21 D, UNK
     Dates: start: 201108

REACTIONS (1)
  - Adverse reaction [None]
